FAERS Safety Report 12312352 (Version 2)
Quarter: 2016Q2

REPORT INFORMATION
  Report Type: Spontaneous
  Country: OM (occurrence: OM)
  Receive Date: 20160428
  Receipt Date: 20160503
  Transmission Date: 20160815
  Serious: Yes (Death, Congenital Anomaly, Other)
  Sender: FDA-Public Use
  Company Number: OM-ROCHE-1746668

PATIENT
  Age: 0 Day
  Sex: Male
  Weight: 2.5 kg

DRUGS (2)
  1. CHLORPHENAMINE MALEATE [Suspect]
     Active Substance: CHLORPHENIRAMINE MALEATE
     Indication: PRODUCT USED FOR UNKNOWN INDICATION
     Route: 064
  2. XOLAIR [Suspect]
     Active Substance: OMALIZUMAB
     Indication: PRODUCT USED FOR UNKNOWN INDICATION
     Route: 064

REACTIONS (5)
  - Foetal exposure during pregnancy [Unknown]
  - Diaphragmatic hernia [Unknown]
  - Dyspnoea [Unknown]
  - Asthenia [Unknown]
  - Death neonatal [Fatal]

NARRATIVE: CASE EVENT DATE: 201603
